FAERS Safety Report 6438454-1 (Version None)
Quarter: 2009Q4

REPORT INFORMATION
  Report Type: 
  Country: None (occurrence: None)
  Receive Date: 20091112
  Receipt Date: 20091103
  Transmission Date: 20100525
  Serious: Yes (Hospitalization)
  Sender: FDA-Public Use
  Company Number: US-ASTRAZENECA-2009SE24172

PATIENT
  Sex: Female

DRUGS (3)
  1. SYMBICORT [Suspect]
     Dosage: 1 PUFF
     Route: 055
     Dates: start: 20091001
  2. SYMBICORT [Suspect]
     Dosage: 2 PUFFS
     Route: 055
  3. RESCUE INHALER [Concomitant]

REACTIONS (1)
  - ACUTE RESPIRATORY DISTRESS SYNDROME [None]
